FAERS Safety Report 6495858-9 (Version None)
Quarter: 2009Q4

REPORT INFORMATION
  Report Type: 
  Country: None (occurrence: None)
  Receive Date: 20091214
  Receipt Date: 20090820
  Transmission Date: 20100525
  Serious: No
  Sender: FDA-Public Use
  Company Number: US-BRISTOL-MYERS SQUIBB COMPANY-14749428

PATIENT
  Age: 57 Year
  Sex: Female
  Weight: 48 kg

DRUGS (9)
  1. ABILIFY [Suspect]
     Indication: MAJOR DEPRESSION
  2. ABILIFY [Suspect]
     Indication: GENERALISED ANXIETY DISORDER
  3. LEXAPRO [Concomitant]
  4. PRISTIQ [Concomitant]
  5. XANAX [Concomitant]
  6. GEODON [Concomitant]
  7. RESTORIL [Concomitant]
  8. DEPLIN [Concomitant]
  9. TOPAMAX [Concomitant]

REACTIONS (2)
  - WEIGHT DECREASED [None]
  - WHITE BLOOD CELL COUNT DECREASED [None]
